FAERS Safety Report 5565341-3 (Version None)
Quarter: 2007Q4

REPORT INFORMATION
  Report Type: 
  Country: None (occurrence: None)
  Receive Date: 20071218
  Receipt Date: 20061114
  Transmission Date: 20080405
  Serious: No
  Sender: FDA-Public Use
  Company Number: US-BAUSCH-2006BL006402

PATIENT
  Age: 53 Year
  Sex: Female

DRUGS (1)
  1. TOBRAMYCIN [Suspect]
     Route: 047
     Dates: start: 20061110, end: 20061112

REACTIONS (2)
  - EYE PAIN [None]
  - EYE PRURITUS [None]
